FAERS Safety Report 15824382 (Version 1)
Quarter: 2019Q1

REPORT INFORMATION
  Report Type: Spontaneous
  Country: US (occurrence: US)
  Receive Date: 20190115
  Receipt Date: 20190115
  Transmission Date: 20190417
  Serious: No
  Sender: FDA-Public Use
  Company Number: US-MELINTA THERAPEUTICS, INC.-MTP201811-000098

PATIENT
  Sex: Male
  Weight: 121.56 kg

DRUGS (1)
  1. BAXDELA [Suspect]
     Active Substance: DELAFLOXACIN MEGLUMINE
     Indication: SKIN ULCER
     Dosage: UNKNOWN
     Route: 048
     Dates: start: 20180926, end: 201810

REACTIONS (1)
  - Rash [Recovered/Resolved]
